FAERS Safety Report 10594902 (Version 1)
Quarter: 2014Q4

REPORT INFORMATION
  Report Type: Spontaneous
  Country: US (occurrence: None)
  Receive Date: 20141119
  Receipt Date: 20141119
  Transmission Date: 20150529
  Serious: Yes (Life-Threatening, Hospitalization, Disabling)
  Sender: FDA-Public Use
  Company Number: None

PATIENT
  Age: 37 Year
  Sex: Male
  Weight: 74.84 kg

DRUGS (7)
  1. CELEXA [Suspect]
     Active Substance: CITALOPRAM HYDROBROMIDE
  2. SEROQUEL [Suspect]
     Active Substance: QUETIAPINE FUMARATE
  3. COGENTIN [Suspect]
     Active Substance: BENZTROPINE MESYLATE
  4. CELEXA [Suspect]
     Active Substance: CITALOPRAM HYDROBROMIDE
  5. XANAX [Suspect]
     Active Substance: ALPRAZOLAM
  6. RISPERIDONE 2MG TABLETS ZYDUS PHARM [Suspect]
     Active Substance: RISPERIDONE
  7. DEPAKOTE [Suspect]
     Active Substance: DIVALPROEX SODIUM

REACTIONS (2)
  - Mental disorder [None]
  - Theft [None]

NARRATIVE: CASE EVENT DATE: 20100913
